FAERS Safety Report 6786679-8 (Version None)
Quarter: 2010Q2

REPORT INFORMATION
  Report Type: 
  Country: None (occurrence: None)
  Receive Date: 20100623
  Receipt Date: 20100614
  Transmission Date: 20101027
  Serious: Yes (Other)
  Sender: FDA-Public Use
  Company Number: US-PFIZER INC-2010074975

PATIENT
  Sex: Female
  Weight: 70.295 kg

DRUGS (2)
  1. LIPITOR [Suspect]
     Indication: BLOOD CHOLESTEROL INCREASED
     Dosage: 40 MG, 1X/DAY
     Route: 048
     Dates: start: 20040101, end: 20100609
  2. VITAMINS [Concomitant]
     Dosage: UNK
     Dates: end: 20100601

REACTIONS (3)
  - DYSPEPSIA [None]
  - LYMPHOMA [None]
  - MUSCLE SPASMS [None]
